FAERS Safety Report 8760036 (Version 1)
Quarter: 2012Q4

REPORT INFORMATION
  Report Type: Report from Study
  Country: AT (occurrence: AT)
  Receive Date: 20120829
  Receipt Date: 20120829
  Transmission Date: 20130627
  Serious: Yes (Death)
  Sender: FDA-Public Use
  Company Number: AT-ROCHE-1107259

PATIENT
  Age: 48 Year
  Sex: Female

DRUGS (2)
  1. AVASTIN [Suspect]
     Indication: BRAIN NEOPLASM MALIGNANT
  2. IRINOTECAN HYDROCHLORIDE [Suspect]
     Indication: BRAIN NEOPLASM MALIGNANT

REACTIONS (1)
  - Pyrexia [Fatal]
